FAERS Safety Report 6528903-2 (Version None)
Quarter: 2009Q4

REPORT INFORMATION
  Report Type: 
  Country: None (occurrence: None)
  Receive Date: 20091223
  Receipt Date: 20091210
  Transmission Date: 20100525
  Serious: Yes (Other)
  Sender: FDA-Public Use
  Company Number: 002920

PATIENT
  Sex: Female

DRUGS (2)
  1. VIMPAT [Suspect]
  2. VALPROIC ACID [Suspect]

REACTIONS (1)
  - WEIGHT DECREASED [None]
